FAERS Safety Report 9791816 (Version 1)
Quarter: 2014Q1

REPORT INFORMATION
  Report Type: Spontaneous
  Country: US (occurrence: US)
  Receive Date: 20140102
  Receipt Date: 20140102
  Transmission Date: 20141002
  Serious: Yes (Hospitalization, Other)
  Sender: FDA-Public Use
  Company Number: US-JNJFOC-20131216662

PATIENT
  Sex: Female
  Weight: 61.24 kg

DRUGS (2)
  1. XARELTO [Suspect]
     Indication: ATRIAL FLUTTER
     Route: 048
     Dates: start: 2013
  2. CARVEDILOL [Suspect]
     Indication: BLOOD PRESSURE
     Route: 048
     Dates: start: 201311

REACTIONS (6)
  - Atrial flutter [Not Recovered/Not Resolved]
  - Mitral valve disease [Recovered/Resolved]
  - Dyspnoea [Not Recovered/Not Resolved]
  - Fatigue [Not Recovered/Not Resolved]
  - Dizziness [Not Recovered/Not Resolved]
  - Drug dose omission [Recovered/Resolved]
